FAERS Safety Report 4353275-1 (Version None)
Quarter: 2004Q2

REPORT INFORMATION
  Report Type: 
  Country: None (occurrence: None)
  Receive Date: 20040503
  Receipt Date: 20040503
  Transmission Date: 20050107
  Serious: Yes (Hospitalization)
  Sender: FDA-Public Use
  Company Number: None

PATIENT
  Age: 64 Year
  Sex: Male
  Weight: 80.7 kg

DRUGS (7)
  1. AMPHOTERICIN B [Suspect]
     Indication: CRYPTOCOCCOSIS
     Dosage: 375 MG IV Q 24 H
     Route: 042
     Dates: start: 20040104
  2. FLUCYTOSINE [Suspect]
     Dosage: 2 GMS PO Q 12 H
     Route: 048
     Dates: start: 20040104
  3. BACTRIM DS [Concomitant]
  4. HEPARIN [Concomitant]
  5. LOPERAMIDE HCL [Concomitant]
  6. TOPICAL STEROIDS [Concomitant]
  7. TYLENOL (CAPLET) [Concomitant]

REACTIONS (2)
  - ANAEMIA [None]
  - RENAL FAILURE ACUTE [None]
